FAERS Safety Report 22308810 (Version 1)
Quarter: 2023Q2

REPORT INFORMATION
  Report Type: Spontaneous
  Country: US (occurrence: None)
  Receive Date: 20230510
  Receipt Date: 20230510
  Transmission Date: 20230721
  Serious: No
  Sender: FDA-Public Use
  Company Number: None

PATIENT
  Age: 72 Year
  Sex: Male
  Weight: 117.03 kg

DRUGS (6)
  1. CAPECITABINE [Suspect]
     Active Substance: CAPECITABINE
     Indication: Colon cancer
     Dosage: OTHER FREQUENCY : 2W, 1W, OFF;?
     Route: 048
  2. MONTELUKAST SODIUM [Concomitant]
     Active Substance: MONTELUKAST SODIUM
  3. XOLAIR SUBCUTANEOUS SOLUTION [Concomitant]
  4. MYSOLINE [Concomitant]
     Active Substance: PRIMIDONE
  5. AVASTIN INTRAVENOUS [Concomitant]
  6. OXALIPLATIN INTRAVENOUS [Concomitant]

REACTIONS (2)
  - Colon cancer [None]
  - Malignant neoplasm progression [None]
